FAERS Safety Report 23735762 (Version 1)
Quarter: 2024Q2

REPORT INFORMATION
  Report Type: Spontaneous
  Country: FR (occurrence: FR)
  Receive Date: 20240412
  Receipt Date: 20240412
  Transmission Date: 20240715
  Serious: Yes (Death)
  Sender: FDA-Public Use
  Company Number: None

PATIENT
  Age: 87 Year
  Sex: Female
  Weight: 69 kg

DRUGS (1)
  1. OXALIPLATIN [Suspect]
     Active Substance: OXALIPLATIN
     Indication: Colorectal cancer
     Dosage: 5 MG/ML, CONCENTRATE FOR SOLUTION FOR INFUSION
     Dates: start: 20231107, end: 20231107

REACTIONS (2)
  - Respiratory distress [Fatal]
  - Dyskinesia [Fatal]

NARRATIVE: CASE EVENT DATE: 20231107
